FAERS Safety Report 7911763-2 (Version None)
Quarter: 2011Q4

REPORT INFORMATION
  Report Type: 
  Country: None (occurrence: None)
  Receive Date: 20111114
  Receipt Date: 20111114
  Transmission Date: 20120403
  Serious: Yes (Other)
  Sender: FDA-Public Use
  Company Number: None

PATIENT
  Age: 2 Year
  Sex: Female
  Weight: 13.607 kg

DRUGS (1)
  1. COLCRYS [Suspect]
     Indication: FAMILIAL MEDITERRANEAN FEVER
     Dosage: 0.6MG
     Route: 048
     Dates: start: 20110201, end: 20111001

REACTIONS (3)
  - DISEASE RECURRENCE [None]
  - FAMILIAL MEDITERRANEAN FEVER [None]
  - PRODUCT SUBSTITUTION ISSUE [None]
